FAERS Safety Report 19805319 (Version 1)
Quarter: 2021Q3

REPORT INFORMATION
  Report Type: Spontaneous
  Country: UY (occurrence: UY)
  Receive Date: 20210909
  Receipt Date: 20210909
  Transmission Date: 20211014
  Serious: Yes (Other)
  Sender: FDA-Public Use
  Company Number: UY-AMGEN-URYSP2021051799

PATIENT
  Age: 59 Year
  Sex: Male

DRUGS (1)
  1. ENBREL [Suspect]
     Active Substance: ETANERCEPT
     Indication: RHEUMATOID ARTHRITIS
     Dosage: 50 MG, WEEKLY
     Route: 065
     Dates: start: 20180228

REACTIONS (3)
  - Loss of personal independence in daily activities [Unknown]
  - Hepatic function abnormal [Not Recovered/Not Resolved]
  - Drug-induced liver injury [Unknown]

NARRATIVE: CASE EVENT DATE: 202102
